FAERS Safety Report 7208725-X (Version None)
Quarter: 2010Q4

REPORT INFORMATION
  Report Type: 
  Country: None (occurrence: None)
  Receive Date: 20101222
  Receipt Date: 20101207
  Transmission Date: 20110411
  Serious: Yes (Hospitalization)
  Sender: FDA-Public Use
  Company Number: 1000017742

PATIENT
  Age: 91 Year
  Sex: Female

DRUGS (11)
  1. NEBIVOLOL HCL [Suspect]
     Indication: HYPERTENSION
     Dosage: ORAL
     Route: 048
  2. AMLODIPINE BESYLATE [Suspect]
     Indication: HYPERTENSION
     Dosage: 5 MG (5 MG,1 IN 1 D),ORAL
     Route: 048
  3. PLAVIX [Concomitant]
  4. DIACTANE (NAFTIDROFURYL OXLATE) (NAFTIDROFURYL OXALATE) [Concomitant]
  5. PIRACETAM (PIRACETAM) (PIRACETAM) [Concomitant]
  6. BIOCIDAN (CETHEXONIUM BROMIDE) (CETHEXONIUM BROMIDE) [Concomitant]
  7. GAVISCAN (SODIUM ALGINATE, ALUMINIUM HYDROXIDE, SODIUM BICARBONATE) (S [Concomitant]
  8. VASTERAL (TRIMETAZIDINE HYDROCHLORIDE) (TRIMETAZIDINE HYDROCHLORIDE) [Concomitant]
  9. ZOCOR [Concomitant]
  10. LANGORAN (ISOSORBIDE DINITRATE) (ISOSORBIDE DINITRATE) [Concomitant]
  11. DAFALGAN (PARACETAMOL) (PARACETAMOL) [Concomitant]

REACTIONS (5)
  - DIZZINESS [None]
  - FALL [None]
  - GENERAL PHYSICAL HEALTH DETERIORATION [None]
  - HYPOTENSION [None]
  - SPINAL FRACTURE [None]
